FAERS Safety Report 10241978 (Version 1)
Quarter: 2014Q2

REPORT INFORMATION
  Report Type: Spontaneous
  Country: US (occurrence: US)
  Receive Date: 20140617
  Receipt Date: 20140617
  Transmission Date: 20141212
  Serious: No
  Sender: FDA-Public Use
  Company Number: US-PFIZER INC-2014163955

PATIENT
  Age: 37 Year
  Sex: Female
  Weight: 54.42 kg

DRUGS (2)
  1. NEURONTIN [Suspect]
     Indication: MIGRAINE
     Dosage: UNK
     Route: 048
     Dates: end: 2013
  2. NEURONTIN [Suspect]
     Indication: FACIAL NEURALGIA

REACTIONS (1)
  - Drug ineffective [Unknown]
